FAERS Safety Report 18625249 (Version 1)
Quarter: 2020Q4

REPORT INFORMATION
  Report Type: Spontaneous
  Country: US (occurrence: US)
  Receive Date: 20201216
  Receipt Date: 20201216
  Transmission Date: 20210114
  Serious: No
  Sender: FDA-Public Use
  Company Number: US-BAYER-2020-271537

PATIENT
  Age: 11 Year
  Sex: Female
  Weight: 34.4 kg

DRUGS (1)
  1. ALEVE [Suspect]
     Active Substance: NAPROXEN SODIUM
     Indication: ARTHRITIS

REACTIONS (4)
  - Wrong technique in product usage process [None]
  - Adverse event [None]
  - Off label use [Unknown]
  - Product use in unapproved indication [None]
